FAERS Safety Report 5091125-9 (Version None)
Quarter: 2006Q3

REPORT INFORMATION
  Report Type: 
  Country: None (occurrence: None)
  Receive Date: 20060727
  Receipt Date: 20060403
  Transmission Date: 20061208
  Serious: Yes (Other)
  Sender: FDA-Public Use
  Company Number: 2006047079

PATIENT
  Age: 37 Year
  Sex: Female
  Weight: 70.3075 kg

DRUGS (5)
  1. LYRICA [Suspect]
     Indication: HEADACHE
     Dosage: 150 MG (75 MG,2 IN 1 D),ORAL
     Route: 048
     Dates: start: 20060328
  2. TOPROL-XL [Suspect]
     Indication: ILL-DEFINED DISORDER
     Dosage: (50 MG)
  3. LORAZEPAM [Concomitant]
  4. PRILOSEC [Concomitant]
  5. CHLOR-TRIMETON [Concomitant]

REACTIONS (6)
  - CHEST PAIN [None]
  - DIZZINESS [None]
  - DYSPNOEA [None]
  - DYSURIA [None]
  - MICTURITION URGENCY [None]
  - URINARY TRACT INFECTION [None]
